FAERS Safety Report 9115310 (Version 1)
Quarter: 2013Q1

REPORT INFORMATION
  Report Type: Spontaneous
  Country: US (occurrence: US)
  Receive Date: 20130225
  Receipt Date: 20130225
  Transmission Date: 20140127
  Serious: No
  Sender: FDA-Public Use
  Company Number: US-PFIZER INC-2013065353

PATIENT
  Sex: Male
  Weight: 79.37 kg

DRUGS (5)
  1. TRIAZOLAM [Suspect]
     Indication: SLEEP DISORDER
     Dosage: 0.25 MG, 1X/DAY
  2. TRIAZOLAM [Suspect]
     Dosage: UNK, 1X/DAY
  3. LIBRAX [Concomitant]
     Indication: HIATUS HERNIA
     Dosage: 15/2.5 MG, 2X/DAY
  4. ADVAIR [Concomitant]
     Indication: CHRONIC OBSTRUCTIVE PULMONARY DISEASE
     Dosage: UNK, 1X/DAY
  5. XOPENEX [Concomitant]
     Indication: CHRONIC OBSTRUCTIVE PULMONARY DISEASE
     Dosage: 45 UG, UNK

REACTIONS (3)
  - Drug ineffective [Unknown]
  - Gastrooesophageal reflux disease [Unknown]
  - Blood cholesterol abnormal [Unknown]
